FAERS Safety Report 25822994 (Version 1)
Quarter: 2025Q3

REPORT INFORMATION
  Report Type: Report from Study
  Country: BR (occurrence: BR)
  Receive Date: 20250919
  Receipt Date: 20250919
  Transmission Date: 20251021
  Serious: Yes (Hospitalization, Other)
  Sender: TAKEDA
  Company Number: BR-TAKEDA-BR202030541

PATIENT
  Age: 25 Year
  Sex: Male
  Weight: 72 kg

DRUGS (13)
  1. AGALSIDASE ALFA [Suspect]
     Active Substance: AGALSIDASE ALFA
     Indication: Fabry^s disease
     Dosage: 5 DOSAGE FORM, Q2WEEKS
     Dates: start: 2019
  2. AGALSIDASE ALFA [Suspect]
     Active Substance: AGALSIDASE ALFA
     Dosage: 4 DOSAGE FORM, 2/MONTH
     Dates: start: 20200703
  3. AGALSIDASE ALFA [Suspect]
     Active Substance: AGALSIDASE ALFA
     Dosage: 4 DOSAGE FORM, 2/MONTH
     Dates: start: 20201018
  4. AGALSIDASE ALFA [Suspect]
     Active Substance: AGALSIDASE ALFA
  5. AGALSIDASE ALFA [Suspect]
     Active Substance: AGALSIDASE ALFA
  6. AGALSIDASE ALFA [Suspect]
     Active Substance: AGALSIDASE ALFA
     Dosage: 5 DOSAGE FORM, 2/MONTH
  7. AGALSIDASE ALFA [Suspect]
     Active Substance: AGALSIDASE ALFA
     Dosage: 5 DOSAGE FORM, Q2WEEKS
  8. AGALSIDASE ALFA [Suspect]
     Active Substance: AGALSIDASE ALFA
     Dosage: UNK UNK, Q2WEEKS
  9. AGALSIDASE ALFA [Suspect]
     Active Substance: AGALSIDASE ALFA
     Dosage: UNK UNK, Q2WEEKS
     Dates: start: 20250203
  10. AGALSIDASE ALFA [Suspect]
     Active Substance: AGALSIDASE ALFA
  11. ELAPRASE [Suspect]
     Active Substance: IDURSULFASE
     Indication: Fabry^s disease
  12. SODIUM CHLORIDE [Concomitant]
     Active Substance: SODIUM CHLORIDE
     Indication: Product used for unknown indication
  13. Hemax pg [Concomitant]
     Indication: Anaemia
     Dosage: UNK UNK, 1/WEEK

REACTIONS (14)
  - Blood creatine abnormal [Unknown]
  - COVID-19 [Unknown]
  - Cardiomegaly [Unknown]
  - Renal disorder [Recovered/Resolved]
  - Weight fluctuation [Unknown]
  - Weight decreased [Unknown]
  - Muscle spasms [Unknown]
  - Product availability issue [Unknown]
  - Product dose omission issue [Unknown]
  - Off label use [Unknown]
  - Myalgia [Unknown]
  - Headache [Recovering/Resolving]
  - Asthenia [Recovering/Resolving]
  - Pain [Unknown]

NARRATIVE: CASE EVENT DATE: 20200630
